FAERS Safety Report 17253240 (Version 1)
Quarter: 2020Q1

REPORT INFORMATION
  Report Type: Spontaneous
  Country: US (occurrence: US)
  Receive Date: 20200109
  Receipt Date: 20200109
  Transmission Date: 20200409
  Serious: No
  Sender: FDA-Public Use
  Company Number: US-SA-2020SA006418

PATIENT
  Age: 79 Year
  Sex: Male

DRUGS (1)
  1. PRALUENT [Suspect]
     Active Substance: ALIROCUMAB
     Indication: ILL-DEFINED DISORDER
     Dosage: 75 MG, QOW
     Route: 058
     Dates: start: 20191230

REACTIONS (1)
  - Influenza like illness [Recovered/Resolved]
